FAERS Safety Report 4659283-5 (Version None)
Quarter: 2005Q2

REPORT INFORMATION
  Report Type: 
  Country: None (occurrence: None)
  Receive Date: 20050510
  Receipt Date: 20050427
  Transmission Date: 20051028
  Serious: Yes (Death)
  Sender: FDA-Public Use
  Company Number: 05GER0111

PATIENT

DRUGS (2)
  1. AGGRASTAT                                     (TIROFIBAN HYDROCHLORIDE [Suspect]
  2. HEPARIN [Concomitant]

REACTIONS (1)
  - HAEMORRHAGE [None]
